FAERS Safety Report 5348492-8 (Version None)
Quarter: 2007Q2

REPORT INFORMATION
  Report Type: 
  Country: None (occurrence: None)
  Receive Date: 20070605
  Receipt Date: 20070523
  Transmission Date: 20071010
  Serious: Yes (Other)
  Sender: FDA-Public Use
  Company Number: 2007316556

PATIENT
  Age: 70 Year
  Sex: Female

DRUGS (3)
  1. ROGAINE [Suspect]
     Dosage: TWICE DAILY (2 IN 1 D), TOPICAL
     Route: 061
     Dates: end: 20070410
  2. METOPROLOL TARTRATE [Concomitant]
  3. ASPIRIN [Concomitant]

REACTIONS (2)
  - BLOOD PRESSURE INCREASED [None]
  - HEART RATE INCREASED [None]
